FAERS Safety Report 18888458 (Version 4)
Quarter: 2021Q1

REPORT INFORMATION
  Report Type: Spontaneous
  Country: US (occurrence: US)
  Receive Date: 20210213
  Receipt Date: 20210322
  Transmission Date: 20210420
  Serious: Yes (Other)
  Sender: FDA-Public Use
  Company Number: US-GLAXOSMITHKLINE-US2021AMR037380

PATIENT
  Sex: Female

DRUGS (3)
  1. ZEJULA [Suspect]
     Active Substance: NIRAPARIB
     Indication: OVARIAN CANCER
     Dosage: 200 MG, QD
     Dates: start: 20210204
  2. ZEJULA [Suspect]
     Active Substance: NIRAPARIB
     Dosage: 200 MG, QD
  3. ZEJULA [Suspect]
     Active Substance: NIRAPARIB
     Dosage: 100 MG, QD

REACTIONS (11)
  - Cough [Unknown]
  - Drug ineffective [Unknown]
  - Platelet count decreased [Unknown]
  - Rash [Recovered/Resolved]
  - Metastasis [Unknown]
  - Headache [Unknown]
  - Incorrect dose administered [Unknown]
  - Abdominal pain [Unknown]
  - Hypertension [Unknown]
  - Constipation [Unknown]
  - Pain [Unknown]
